FAERS Safety Report 5936935-8 (Version None)
Quarter: 2008Q4

REPORT INFORMATION
  Report Type: 
  Country: None (occurrence: None)
  Receive Date: 20081031
  Receipt Date: 20081021
  Transmission Date: 20090506
  Serious: Yes (Other)
  Sender: FDA-Public Use
  Company Number: BR-BAYER-200819647LA

PATIENT
  Age: 31 Year
  Sex: Female
  Weight: 55 kg

DRUGS (1)
  1. MIRENA [Suspect]
     Indication: CONTRACEPTION
     Route: 015
     Dates: start: 20080519

REACTIONS (5)
  - ABDOMINAL PAIN [None]
  - ANAL HAEMORRHAGE [None]
  - FLATULENCE [None]
  - IUCD COMPLICATION [None]
  - UTERINE HAEMORRHAGE [None]
